FAERS Safety Report 10017990 (Version 2)
Quarter: 2014Q2

REPORT INFORMATION
  Report Type: Spontaneous
  Country: US (occurrence: US)
  Receive Date: 20140318
  Receipt Date: 20140612
  Transmission Date: 20141212
  Serious: Yes (Life-Threatening, Hospitalization)
  Sender: FDA-Public Use
  Company Number: US-BAYER-2014-038704

PATIENT
  Age: 27 Year
  Sex: Female
  Weight: 93.42 kg

DRUGS (5)
  1. MIRENA [Suspect]
     Indication: CONTRACEPTION
     Dosage: 20 MCG/24HR, CONT
     Route: 015
     Dates: start: 20100107, end: 20110311
  2. PRENATAL VITAMINS [Concomitant]
  3. NIFEDIPINE [Concomitant]
  4. IRON [Concomitant]
  5. HYDROCHLOROTHIAZIDE [Concomitant]

REACTIONS (9)
  - Uterine perforation [None]
  - Device difficult to use [None]
  - Abdominal pain lower [None]
  - Pelvic pain [None]
  - General physical health deterioration [None]
  - Anxiety [None]
  - Anhedonia [None]
  - Injury [None]
  - Device issue [None]
